FAERS Safety Report 10999773 (Version 3)
Quarter: 2015Q2

REPORT INFORMATION
  Report Type: Report from Study
  Country: NZ (occurrence: NZ)
  Receive Date: 20150408
  Receipt Date: 20150514
  Transmission Date: 20150821
  Serious: Yes (Hospitalization, Other)
  Sender: FDA-Public Use
  Company Number: NZ-ABBVIE-15K-118-1370827-00

PATIENT
  Sex: Female

DRUGS (2)
  1. TRAMADOL [Concomitant]
     Active Substance: TRAMADOL
     Indication: PRODUCT USED FOR UNKNOWN INDICATION
     Dates: start: 201410
  2. HUMIRA [Suspect]
     Active Substance: ADALIMUMAB
     Indication: CROHN^S DISEASE
     Route: 065

REACTIONS (19)
  - Hypophagia [Not Recovered/Not Resolved]
  - Diarrhoea [Unknown]
  - Constipation [Unknown]
  - Intervertebral disc protrusion [Unknown]
  - Pneumonia legionella [Unknown]
  - Abdominal pain upper [Unknown]
  - Injection site vesicles [Unknown]
  - Gastrointestinal infection [Unknown]
  - Gastrointestinal pain [Unknown]
  - Fluid intake reduced [Not Recovered/Not Resolved]
  - Nausea [Unknown]
  - Nocturnal dyspnoea [Unknown]
  - Lower respiratory tract infection fungal [Unknown]
  - Sputum discoloured [Unknown]
  - Abnormal faeces [Unknown]
  - Pneumonia [Unknown]
  - Vomiting [Unknown]
  - Bowel movement irregularity [Unknown]
  - Polymenorrhoea [Unknown]
